FAERS Safety Report 6818475-7 (Version None)
Quarter: 2010Q3

REPORT INFORMATION
  Report Type: 
  Country: None (occurrence: None)
  Receive Date: 20100706
  Receipt Date: 20080922
  Transmission Date: 20110219
  Serious: No
  Sender: FDA-Public Use
  Company Number: US-PFIZER INC-2008080467

PATIENT
  Sex: Female

DRUGS (2)
  1. ZITHROMAX (CAPS) [Suspect]
  2. HOMEOPATIC PREPARATION [Suspect]

REACTIONS (5)
  - DRUG CLEARANCE DECREASED [None]
  - DRUG TOXICITY [None]
  - HYPERSENSITIVITY [None]
  - PRODUCT QUALITY ISSUE [None]
  - SKIN DISCOLOURATION [None]
